FAERS Safety Report 4944979-8 (Version None)
Quarter: 2006Q1

REPORT INFORMATION
  Report Type: 
  Country: None (occurrence: None)
  Receive Date: 20060117
  Receipt Date: 20050603
  Transmission Date: 20060701
  Serious: Yes (Other)
  Sender: FDA-Public Use
  Company Number: A03200501703

PATIENT
  Age: 87 Year
  Sex: Male
  Weight: 96.7976 kg

DRUGS (4)
  1. PLAVIX [Suspect]
     Indication: CORONARY ARTERIAL STENT INSERTION
     Dosage: 300MG BOLUS FOLLOWED BY 75MG/DAY - ORAL
     Route: 048
     Dates: start: 20050509
  2. INTEGRILIN [Suspect]
     Indication: CORONARY ARTERIAL STENT INSERTION
     Dosage: 2 BOLUS DOSES OF 180MCG/KG FOLLOWED BY A 1 MCG/KG/MIN CONTINUOUS INFUSION - INTRAVENOUS NOS
     Route: 042
     Dates: start: 20050509, end: 20050510
  3. ASPIRIN [Suspect]
     Indication: CORONARY ARTERIAL STENT INSERTION
     Dosage: ORAL
     Route: 048
     Dates: start: 20050509
  4. HEPARIN [Suspect]
     Indication: CORONARY ARTERIAL STENT INSERTION
     Dosage: INTRAVENOUS  NOS
     Route: 042
     Dates: start: 20050509

REACTIONS (3)
  - HAEMATOCRIT DECREASED [None]
  - HAEMOGLOBIN DECREASED [None]
  - MELAENA [None]
